FAERS Safety Report 6215481-0 (Version None)
Quarter: 2009Q2

REPORT INFORMATION
  Report Type: 
  Country: None (occurrence: None)
  Receive Date: 20090603
  Receipt Date: 20090529
  Transmission Date: 20091009
  Serious: Yes (Hospitalization)
  Sender: FDA-Public Use
  Company Number: GXKR2009DE06306

PATIENT
  Age: 70 Year
  Sex: Female
  Weight: 62 kg

DRUGS (8)
  1. RAMIPRIL [Suspect]
     Indication: HYPERTENSION
     Dosage: 10 MG, BID, ORAL
     Route: 048
     Dates: start: 20090415
  2. TRIMIPRAMINE (NGX) (TRIMPRAMINE) TABLET, 25MG [Suspect]
     Indication: DEPRESSION
     Dosage: 25 MG, QD, ORAL
     Route: 048
  3. KINZALKOMB (HYDROCHLOROTHIAZIDE, TELMISARTAN) [Suspect]
     Indication: HYPERTENSION
     Dosage: ORAL
     Route: 048
  4. TRAMADOL HYDROHLORIDE [Suspect]
     Indication: PAIN
     Dosage: ORAL
     Route: 048
     Dates: start: 19990101
  5. METOPROLOL (METOPROLOL) [Concomitant]
  6. PANTOPRAZOLE SODIUM [Concomitant]
  7. SIMVASTATIN [Concomitant]
  8. ZOLPIDEM [Concomitant]

REACTIONS (2)
  - HYPERTENSIVE CRISIS [None]
  - HYPONATRAEMIA [None]
